FAERS Safety Report 8993466 (Version 2)
Quarter: 2013Q1

REPORT INFORMATION
  Report Type: Spontaneous
  Country: US (occurrence: US)
  Receive Date: 20130102
  Receipt Date: 20130118
  Transmission Date: 20140127
  Serious: No
  Sender: FDA-Public Use
  Company Number: US-PFIZER INC-2012328073

PATIENT
  Age: 73 Year
  Sex: Male
  Weight: 78.91 kg

DRUGS (3)
  1. VORICONAZOLE [Suspect]
     Indication: MENINGITIS FUNGAL
     Dosage: 400 MG, 2X/DAY
     Route: 048
     Dates: start: 20121005
  2. TOPROL XL [Concomitant]
     Indication: HYPERTENSION
     Dosage: UNK
  3. LISINOPRIL [Concomitant]
     Indication: HYPERTENSION
     Dosage: UNK

REACTIONS (10)
  - Confusional state [Unknown]
  - Asthenia [Unknown]
  - Vision blurred [Not Recovered/Not Resolved]
  - Dizziness [Unknown]
  - Pain in extremity [Unknown]
  - Balance disorder [Unknown]
  - Balance disorder [Unknown]
  - Coordination abnormal [Unknown]
  - Feeling jittery [Unknown]
  - Tremor [Unknown]
